FAERS Safety Report 24889125 (Version 11)
Quarter: 2025Q4

REPORT INFORMATION
  Report Type: Spontaneous
  Country: JP (occurrence: JP)
  Receive Date: 20250127
  Receipt Date: 20251003
  Transmission Date: 20260118
  Serious: Yes (Death, Life-Threatening, Hospitalization, Other)
  Sender: ABBVIE
  Company Number: JP-ABBVIE-6064432

PATIENT
  Age: 22 Year
  Sex: Male
  Weight: 49 kg

DRUGS (7)
  1. RINVOQ [Suspect]
     Active Substance: UPADACITINIB
     Indication: Colitis ulcerative
     Dosage: FORM STRENGTH: 15 MILLIGRAM
     Route: 048
     Dates: start: 20241121, end: 20241206
  2. PREDONINE [Suspect]
     Active Substance: PREDNISOLONE
     Indication: Colitis ulcerative
     Dosage: 5 TO 10 MG
     Route: 048
     Dates: start: 2021
  3. PREDONINE [Suspect]
     Active Substance: PREDNISOLONE
     Indication: Colitis ulcerative
     Dosage: 40MG?INCREASED
     Route: 048
  4. FILGOTINIB [Suspect]
     Active Substance: FILGOTINIB
     Indication: Colitis ulcerative
     Dosage: 200 MILLIGRAM
     Route: 048
     Dates: start: 20241108, end: 20241120
  5. Clostridium butyricum [Concomitant]
     Indication: Colitis ulcerative
     Dosage: TIME INTERVAL: 0.33333333 DAYS: 18 TABLET
     Route: 048
     Dates: start: 20241108, end: 20241206
  6. BUDESONIDE [Concomitant]
     Active Substance: BUDESONIDE
     Indication: Colitis ulcerative
     Dosage: 4 MILLIGRAM
     Route: 054
     Dates: start: 20241101, end: 20241206
  7. MESALAMINE [Concomitant]
     Active Substance: MESALAMINE
     Indication: Colitis ulcerative
     Dosage: 4800 MILLIGRAM
     Route: 048
     Dates: start: 2021

REACTIONS (21)
  - Varicella [Fatal]
  - Disseminated intravascular coagulation [Fatal]
  - Haemophagocytic lymphohistiocytosis [Fatal]
  - Multiple organ dysfunction syndrome [Fatal]
  - Hepatic function abnormal [Fatal]
  - Immunosuppression [Unknown]
  - Brain oedema [Unknown]
  - Bacterial infection [Unknown]
  - Renal disorder [Unknown]
  - Cardiac failure [Unknown]
  - Septic shock [Unknown]
  - Cardio-respiratory arrest [Unknown]
  - Respiratory disorder [Unknown]
  - Encephalitis herpes [Unknown]
  - Rash [Unknown]
  - Pyrexia [Unknown]
  - Acne [Unknown]
  - Depressed level of consciousness [Recovering/Resolving]
  - Pancytopenia [Unknown]
  - Coagulopathy [Unknown]
  - Depressed level of consciousness [Unknown]

NARRATIVE: CASE EVENT DATE: 20241207
